FAERS Safety Report 10216327 (Version 1)
Quarter: 2014Q2

REPORT INFORMATION
  Report Type: Spontaneous
  Country: US (occurrence: US)
  Receive Date: 20140604
  Receipt Date: 20140604
  Transmission Date: 20141212
  Serious: Yes (Other)
  Sender: FDA-Public Use
  Company Number: US-PFIZER INC-2014149703

PATIENT
  Age: 73 Year
  Sex: Female
  Weight: 68.93 kg

DRUGS (6)
  1. REVATIO [Suspect]
     Indication: PULMONARY HYPERTENSION
     Dosage: 40 MG (2 TABLETS OF 20 MG), 3X/DAY
  2. DYAZIDE [Concomitant]
     Indication: DIURETIC THERAPY
     Dosage: [HYDROCHLOROTHAZIDE 25MG/ TRIAMTERENE 37.5MG], DAILY
  3. OMEPRAZOLE [Concomitant]
     Indication: GASTRIC DISORDER
     Dosage: 20 MG, DAILY
  4. MAG-OXIDE [Concomitant]
     Dosage: 400 MG, 2X/DAY
  5. POTASSIUM [Concomitant]
     Dosage: 20 MG, 2X/DAY
  6. WARFARIN [Concomitant]
     Dosage: 4 MG, DAILY

REACTIONS (2)
  - Pancreatic carcinoma [Unknown]
  - Pancreatic disorder [Unknown]
